FAERS Safety Report 9857424 (Version 1)
Quarter: 2014Q1

REPORT INFORMATION
  Report Type: Report from Study
  Country: DE (occurrence: DE)
  Receive Date: 20140131
  Receipt Date: 20140131
  Transmission Date: 20141002
  Serious: Yes (Hospitalization)
  Sender: FDA-Public Use
  Company Number: DE-ROCHE-1339181

PATIENT
  Age: 76 Year
  Sex: Female
  Weight: 80 kg

DRUGS (9)
  1. BEVACIZUMAB [Suspect]
     Indication: COLON CANCER
     Route: 042
     Dates: start: 20130830
  2. 5-FLUOROURACIL [Suspect]
     Indication: COLON CANCER
     Route: 040
     Dates: start: 20130830
  3. 5-FLUOROURACIL [Suspect]
     Route: 041
     Dates: start: 20131230
  4. OXALIPLATIN [Suspect]
     Indication: COLON CANCER
     Route: 042
     Dates: start: 20130830
  5. DEXAMETHASON [Concomitant]
     Indication: NAUSEA
     Route: 042
     Dates: start: 20131230
  6. ZOFRAN [Concomitant]
     Indication: NAUSEA
     Route: 042
     Dates: start: 20131230
  7. AMLODIPIN [Concomitant]
     Indication: HYPERTENSION
     Route: 048
  8. CARVEDILOL [Concomitant]
     Indication: DEPRESSION
     Route: 048
  9. ALLOPURINOL [Concomitant]
     Indication: GOUT
     Route: 048

REACTIONS (3)
  - Swollen tongue [Recovered/Resolved]
  - Pancytopenia [Recovered/Resolved]
  - Thrombocytopenia [Not Recovered/Not Resolved]
